FAERS Safety Report 4448784-0 (Version None)
Quarter: 2004Q3

REPORT INFORMATION
  Report Type: 
  Country: None (occurrence: None)
  Receive Date: 20040909
  Receipt Date: 20040825
  Transmission Date: 20050211
  Serious: Yes (Hospitalization)
  Sender: FDA-Public Use
  Company Number: 04P-163-0271515-00

PATIENT
  Age: 64 Year
  Sex: Female
  Weight: 61.2356 kg

DRUGS (5)
  1. HUMIRA [Suspect]
     Indication: RHEUMATOID ARTHRITIS
     Dosage: 40 MG, 1 IN 1 WK, SUBCUTANEOUS
     Route: 058
     Dates: start: 20030601
  2. PREDNISONE [Concomitant]
  3. ESOMEPRAZOLE [Concomitant]
  4. AMLODIPINE BESYLATE [Concomitant]
  5. LISINOPRIL [Concomitant]

REACTIONS (3)
  - CONVULSION [None]
  - SEPSIS [None]
  - SPINAL COMPRESSION FRACTURE [None]
